FAERS Safety Report 7123548-8 (Version None)
Quarter: 2010Q4

REPORT INFORMATION
  Report Type: 
  Country: None (occurrence: None)
  Receive Date: 20101125
  Receipt Date: 20101122
  Transmission Date: 20110411
  Serious: Yes (Death, Hospitalization)
  Sender: FDA-Public Use
  Company Number: TR-SANOFI-AVENTIS-200920292GDDC

PATIENT
  Age: 46 Year
  Sex: Female

DRUGS (4)
  1. DOCETAXEL [Suspect]
     Route: 042
     Dates: start: 20090124, end: 20090124
  2. DOCETAXEL [Suspect]
     Route: 042
     Dates: start: 20090803, end: 20090803
  3. TRASTUZUMAB [Suspect]
     Route: 042
     Dates: start: 20090123, end: 20090123
  4. TRASTUZUMAB [Suspect]
     Route: 042
     Dates: start: 20090803, end: 20090803

REACTIONS (6)
  - BREAST CANCER [None]
  - DYSPNOEA [None]
  - MALIGNANT NEOPLASM PROGRESSION [None]
  - PLEURAL EFFUSION [None]
  - PNEUMONIA [None]
  - RESPIRATORY FAILURE [None]
